FAERS Safety Report 4577943-1 (Version None)
Quarter: 2005Q1

REPORT INFORMATION
  Report Type: 
  Country: None (occurrence: None)
  Receive Date: 20050209
  Receipt Date: 20050125
  Transmission Date: 20050727
  Serious: Yes (Hospitalization, Other)
  Sender: FDA-Public Use
  Company Number: 2003JP006953

PATIENT
  Age: 9 Year
  Sex: Female
  Weight: 22.9 kg

DRUGS (11)
  1. TACROLIMUS INJECTION (TACROLIMUS) INJECTION [Suspect]
     Indication: RENAL TRANSPLANT
     Dosage: 2.20 MG INTRAVENOUS
     Route: 042
     Dates: start: 20010620, end: 20010623
  2. METHYLPREDNISOLONE [Concomitant]
  3. PREDNISONE [Concomitant]
  4. CYCLOPHOSPHAMIDE [Concomitant]
  5. AHLBULIN (ANTILYMPHOCYTE IMMUNOGLOBULIN (HORSE)) [Concomitant]
  6. EXCEGRAN (ZONISAMIDE) [Concomitant]
  7. OMEPRAZOLE [Concomitant]
  8. PIPERACILLIN SODIUM [Concomitant]
  9. LASIX [Concomitant]
  10. MINOCYCLINE HCL [Concomitant]
  11. VENOGLOBLIN-IH (IMMUNOGLOBULIN HUMAN NORMAL) [Concomitant]

REACTIONS (5)
  - HAEMODIALYSIS [None]
  - INTRA-ABDOMINAL HAEMORRHAGE [None]
  - NEPHROTIC SYNDROME [None]
  - RENAL FAILURE ACUTE [None]
  - RENAL TRANSPLANT [None]
